FAERS Safety Report 19361334 (Version 1)
Quarter: 2021Q2

REPORT INFORMATION
  Report Type: Spontaneous
  Country: FR (occurrence: FR)
  Receive Date: 20210603
  Receipt Date: 20210603
  Transmission Date: 20210717
  Serious: Yes (Other)
  Sender: FDA-Public Use
  Company Number: FR-SA-2021SA179383

PATIENT
  Age: 24 Year
  Sex: Male
  Weight: 90 kg

DRUGS (7)
  1. ELOCTA [Suspect]
     Active Substance: EFMOROCTOCOG ALFA
     Dosage: 1500 IU
     Route: 042
     Dates: start: 20210503
  2. ELOCTA [Suspect]
     Active Substance: EFMOROCTOCOG ALFA
     Dosage: 1500 IU
     Route: 042
     Dates: start: 20210430
  3. ELOCTA [Suspect]
     Active Substance: EFMOROCTOCOG ALFA
     Dosage: 3000 IU
     Route: 042
     Dates: start: 20210424
  4. ELOCTA [Suspect]
     Active Substance: EFMOROCTOCOG ALFA
     Dosage: 1500 IU
     Route: 042
     Dates: start: 20210513
  5. ELOCTA [Suspect]
     Active Substance: EFMOROCTOCOG ALFA
     Dosage: 1500 IU
     Route: 042
     Dates: start: 20210506
  6. ELOCTA [Suspect]
     Active Substance: EFMOROCTOCOG ALFA
     Indication: FACTOR VIII DEFICIENCY
     Dosage: 3000 IU, PRN
     Route: 042
     Dates: start: 202103
  7. ELOCTA [Suspect]
     Active Substance: EFMOROCTOCOG ALFA
     Dosage: 1500 IU
     Route: 042
     Dates: start: 20210510

REACTIONS (5)
  - Hot flush [Recovered/Resolved]
  - Tremor [Recovered/Resolved]
  - Fatigue [Recovered/Resolved]
  - Abdominal pain [Recovered/Resolved]
  - Chills [Recovered/Resolved]

NARRATIVE: CASE EVENT DATE: 20210503
